FAERS Safety Report 23350215 (Version 4)
Quarter: 2024Q4

REPORT INFORMATION
  Report Type: Spontaneous
  Country: US (occurrence: US)
  Receive Date: 20231229
  Receipt Date: 20241123
  Transmission Date: 20250115
  Serious: Yes (Other)
  Sender: AMGEN
  Company Number: US-AMGEN-USASP2023232008

PATIENT
  Age: 43 Year
  Sex: Male

DRUGS (11)
  1. OTEZLA [Suspect]
     Active Substance: APREMILAST
     Indication: Psoriatic arthropathy
     Dosage: 30 MILLIGRAM, BID
     Route: 048
     Dates: start: 20230627
  2. OTEZLA [Suspect]
     Active Substance: APREMILAST
     Indication: Psoriasis
  3. ALISKIREN [Concomitant]
     Active Substance: ALISKIREN
     Dosage: UNK(150 MG AND 300 MG)
  4. EPLERENONE [Concomitant]
     Active Substance: EPLERENONE
     Dosage: 25 MILLIGRAM
  5. FINASTERIDE [Concomitant]
     Active Substance: FINASTERIDE
     Dosage: 5 MILLIGRAM
  6. ALBUTEROL [Concomitant]
     Active Substance: ALBUTEROL
     Dosage: UNK
  7. AZELASTINE [Concomitant]
     Active Substance: AZELASTINE
     Dosage: UNK
  8. CLOBETASOL [Concomitant]
     Active Substance: CLOBETASOL
     Dosage: UNK
  9. FLUTICASONE [Concomitant]
     Active Substance: FLUTICASONE
     Dosage: 50 MICROGRAM
  10. METHOCARBAMOL [Concomitant]
     Active Substance: METHOCARBAMOL
     Dosage: 500 MILLIGRAM
  11. BETAMETHASONE ACETATE;SODIUM PHOSPHATE DIBASIC [Concomitant]
     Dosage: 3.3 MILLIGRAM

REACTIONS (7)
  - Psoriatic arthropathy [Unknown]
  - Therapy non-responder [Unknown]
  - Cough [Not Recovered/Not Resolved]
  - Product dose omission issue [Unknown]
  - Gastrointestinal disorder [Unknown]
  - Constipation [Unknown]
  - Psoriasis [Unknown]

NARRATIVE: CASE EVENT DATE: 20230101
